FAERS Safety Report 14129941 (Version 2)
Quarter: 2018Q1

REPORT INFORMATION
  Report Type: Report from Study
  Country: US (occurrence: US)
  Receive Date: 20171026
  Receipt Date: 20180122
  Transmission Date: 20180508
  Serious: No
  Sender: FDA-Public Use
  Company Number: US-AMGEN-USASL2017120805

PATIENT
  Age: 64 Year
  Sex: Female
  Weight: 57.59 kg

DRUGS (3)
  1. REPATHA [Suspect]
     Active Substance: EVOLOCUMAB
     Indication: HYPERCHOLESTEROLAEMIA
  2. NIACIN. [Concomitant]
     Active Substance: NIACIN
     Indication: LIPIDS INCREASED
     Dosage: 500 MG, QD
     Dates: start: 201702
  3. REPATHA [Suspect]
     Active Substance: EVOLOCUMAB
     Indication: BLOOD CHOLESTEROL INCREASED
     Dosage: 140 MG, Q2WK
     Route: 058
     Dates: start: 20170727, end: 20170824

REACTIONS (9)
  - Rhinorrhoea [Recovering/Resolving]
  - Hyperhidrosis [Recovered/Resolved]
  - Ear discomfort [Unknown]
  - Dizziness [Recovering/Resolving]
  - Pain [Unknown]
  - Upper respiratory tract infection [Recovering/Resolving]
  - Ocular discomfort [Unknown]
  - Influenza like illness [Unknown]
  - Feeling cold [Recovered/Resolved]

NARRATIVE: CASE EVENT DATE: 2017
